FAERS Safety Report 4608741-8 (Version None)
Quarter: 2005Q1

REPORT INFORMATION
  Report Type: 
  Country: None (occurrence: None)
  Receive Date: 20050315
  Receipt Date: 20050301
  Transmission Date: 20050727
  Serious: Yes (Other)
  Sender: FDA-Public Use
  Company Number: PHEH2005US02604

PATIENT
  Age: 80 Year
  Sex: Male

DRUGS (5)
  1. ENABLEX [Suspect]
     Indication: URINARY TRACT DISORDER
     Dosage: 7.5 MG, QD
     Dates: start: 20050224, end: 20050226
  2. DETROL [Concomitant]
     Indication: POLLAKIURIA
     Dosage: 4 MG, UNK
  3. LIPITOR [Concomitant]
  4. COREG [Concomitant]
  5. SULAR [Concomitant]

REACTIONS (6)
  - DRUG INEFFECTIVE [None]
  - DYSPHONIA [None]
  - ERYTHEMA MULTIFORME [None]
  - PRURITUS [None]
  - RASH GENERALISED [None]
  - RASH PAPULAR [None]
